FAERS Safety Report 5503040-4 (Version None)
Quarter: 2007Q4

REPORT INFORMATION
  Report Type: 
  Country: None (occurrence: None)
  Receive Date: 20071029
  Receipt Date: 20071017
  Transmission Date: 20080405
  Serious: Yes (Other)
  Sender: FDA-Public Use
  Company Number: 2007SP021055

PATIENT
  Age: 2 Year
  Sex: Male

DRUGS (6)
  1. MIRALAX [Suspect]
     Indication: CONSTIPATION
     Dosage: PO
     Route: 048
     Dates: start: 20060601, end: 20071017
  2. PREVACID [Suspect]
     Indication: DRUG USE FOR UNKNOWN INDICATION
  3. ALLEGRA [Suspect]
     Indication: DRUG USE FOR UNKNOWN INDICATION
  4. PULMICORT [Suspect]
     Indication: DRUG USE FOR UNKNOWN INDICATION
  5. SINGULAIR [Suspect]
     Indication: DRUG USE FOR UNKNOWN INDICATION
  6. NEOCATE [Suspect]
     Indication: DRUG USE FOR UNKNOWN INDICATION

REACTIONS (1)
  - ANAPHYLACTIC REACTION [None]
